FAERS Safety Report 11646188 (Version 1)
Quarter: 2015Q4

REPORT INFORMATION
  Report Type: Spontaneous
  Country: US (occurrence: US)
  Receive Date: 20151020
  Receipt Date: 20151020
  Transmission Date: 20160304
  Serious: No
  Sender: FDA-Public Use
  Company Number: US-ROCHE-1621144

PATIENT
  Sex: Male
  Weight: 91.25 kg

DRUGS (1)
  1. ESBRIET [Suspect]
     Active Substance: PIRFENIDONE
     Indication: IDIOPATHIC PULMONARY FIBROSIS
     Dosage: 1602 MG DAILY?TAKE 2 CAPSULES BY MOUTH THREE TIMES A DAY WITH FOOD
     Route: 048
     Dates: start: 20150629

REACTIONS (3)
  - Decreased appetite [Unknown]
  - Abdominal discomfort [Unknown]
  - Somnolence [Unknown]
